FAERS Safety Report 10233740 (Version 1)
Quarter: 2014Q2

REPORT INFORMATION
  Report Type: Spontaneous
  Country: US (occurrence: US)
  Receive Date: 20140612
  Receipt Date: 20140612
  Transmission Date: 20141212
  Serious: Yes (Hospitalization)
  Sender: FDA-Public Use
  Company Number: US-JNJFOC-20140605115

PATIENT
  Age: 56 Year
  Sex: Male

DRUGS (7)
  1. XARELTO [Suspect]
     Indication: PRODUCT USED FOR UNKNOWN INDICATION
     Route: 048
  2. XARELTO [Suspect]
     Indication: PRODUCT USED FOR UNKNOWN INDICATION
     Route: 048
     Dates: start: 201401
  3. ASPIRIN [Suspect]
     Indication: PRODUCT USED FOR UNKNOWN INDICATION
     Route: 065
  4. OXYCODONE [Concomitant]
     Route: 065
  5. FLOXIN (OFLOXACIN) [Concomitant]
     Route: 065
  6. OXYBUTIN [Concomitant]
     Route: 065
  7. TESTOSTERONE [Concomitant]
     Route: 065

REACTIONS (3)
  - Knee arthroplasty [Unknown]
  - Contusion [Unknown]
  - Haematocrit decreased [Unknown]
